FAERS Safety Report 15264449 (Version 1)
Quarter: 2018Q3

REPORT INFORMATION
  Report Type: Spontaneous
  Country: US (occurrence: US)
  Receive Date: 20180810
  Receipt Date: 20180810
  Transmission Date: 20181010
  Serious: No
  Sender: FDA-Public Use
  Company Number: US-ASTRAZENECA-2018SE98641

PATIENT
  Sex: Female

DRUGS (1)
  1. BYDUREON BCISE [Suspect]
     Active Substance: EXENATIDE
     Route: 065
     Dates: start: 2018

REACTIONS (5)
  - Injection site discharge [Unknown]
  - Incorrect dose administered [Unknown]
  - Device issue [Unknown]
  - Device leakage [Unknown]
  - Injection site mass [Unknown]
